FAERS Safety Report 8512702-6 (Version None)
Quarter: 2012Q3

REPORT INFORMATION
  Report Type: 
  Country: None (occurrence: None)
  Receive Date: 20120716
  Receipt Date: 20120709
  Transmission Date: 20120928
  Serious: Yes (Death)
  Sender: FDA-Public Use
  Company Number: AU-PFIZER INC-2012160794

PATIENT
  Age: 37 Year

DRUGS (1)
  1. REVATIO [Suspect]
     Dosage: 40 MG, 3X/DAY

REACTIONS (1)
  - DEATH [None]
